FAERS Safety Report 13051768 (Version 1)
Quarter: 2016Q4

REPORT INFORMATION
  Report Type: Report from Study
  Country: CA (occurrence: CA)
  Receive Date: 20161221
  Receipt Date: 20161221
  Transmission Date: 20170207
  Serious: Yes (Death, Hospitalization)
  Sender: FDA-Public Use
  Company Number: CA-IPSEN BIOPHARMACEUTICALS, INC.-2016-10680

PATIENT
  Sex: Male

DRUGS (1)
  1. SOMATULINE AUTOGEL [Suspect]
     Active Substance: LANREOTIDE ACETATE
     Indication: NEUROENDOCRINE TUMOUR
     Dosage: 120 MG
     Route: 058
     Dates: start: 20161117

REACTIONS (6)
  - Diabetic ketoacidosis [Fatal]
  - Neuroendocrine carcinoma of the skin [Fatal]
  - Pneumonia [Unknown]
  - International normalised ratio increased [Unknown]
  - Gastrointestinal haemorrhage [Unknown]
  - Rhabdomyolysis [Unknown]

NARRATIVE: CASE EVENT DATE: 2016
